FAERS Safety Report 21104230 (Version 2)
Quarter: 2022Q3

REPORT INFORMATION
  Report Type: Spontaneous
  Country: US (occurrence: US)
  Receive Date: 20220720
  Receipt Date: 20220808
  Transmission Date: 20221027
  Serious: Yes (Other)
  Sender: FDA-Public Use
  Company Number: US-BAYER-2022A095836

PATIENT
  Age: 6 Year
  Sex: Female

DRUGS (2)
  1. KOVALTRY [Suspect]
     Active Substance: ANTIHEMOPHILIC FACTOR, HUMAN RECOMBINANT
     Dosage: 500 IU, BID
     Route: 042
  2. KOVALTRY [Suspect]
     Active Substance: ANTIHEMOPHILIC FACTOR, HUMAN RECOMBINANT
     Dosage: 1 DF, BID, DOUBLE DOSE FOR THE BLEEDING TREATMENT
     Dates: start: 20220705

REACTIONS (2)
  - Post procedural haemorrhage [None]
  - Tonsillectomy [None]

NARRATIVE: CASE EVENT DATE: 20220601
